FAERS Safety Report 8524403-9 (Version None)
Quarter: 2012Q3

REPORT INFORMATION
  Report Type: 
  Country: None (occurrence: None)
  Receive Date: 20120720
  Receipt Date: 20120717
  Transmission Date: 20120928
  Serious: Yes (Other)
  Sender: FDA-Public Use
  Company Number: TR-PFIZER INC-2012080074

PATIENT
  Age: 46 Year
  Sex: Female

DRUGS (3)
  1. APIDRA [Concomitant]
     Dosage: UNK
  2. VARENICLINE TARTRATE [Suspect]
     Dosage: UNK
     Dates: start: 20120222, end: 20120324
  3. LANTUS [Concomitant]
     Dosage: UNK

REACTIONS (3)
  - HERPES ZOSTER [None]
  - DRUG HYPERSENSITIVITY [None]
  - ERYTHEMA [None]
